FAERS Safety Report 9859868 (Version 2)
Quarter: 2014Q1

REPORT INFORMATION
  Report Type: Report from Study
  Country: US (occurrence: US)
  Receive Date: 20140131
  Receipt Date: 20140131
  Transmission Date: 20141002
  Serious: Yes (Hospitalization)
  Sender: FDA-Public Use
  Company Number: US-ACTELION-A-NJ2012-65241

PATIENT
  Age: 77 Year
  Sex: Male

DRUGS (4)
  1. TRACLEER [Suspect]
     Indication: PULMONARY ARTERIAL HYPERTENSION
     Dosage: 125 MG, BID
     Route: 048
     Dates: start: 201207
  2. TRACLEER [Suspect]
     Dosage: UNK
     Route: 048
     Dates: end: 201207
  3. ASPIRIN [Concomitant]
  4. PLAVIX [Concomitant]

REACTIONS (10)
  - Gastrointestinal haemorrhage [Unknown]
  - Anaemia [Unknown]
  - Haemoglobin decreased [Unknown]
  - Haematocrit decreased [Unknown]
  - Chest pain [Unknown]
  - International normalised ratio increased [Unknown]
  - Fatigue [Unknown]
  - Dyspnoea [Unknown]
  - Dyspnoea exertional [Unknown]
  - Pulmonary arterial pressure increased [Unknown]
